FAERS Safety Report 6445576-8 (Version None)
Quarter: 2009Q4

REPORT INFORMATION
  Report Type: 
  Country: None (occurrence: None)
  Receive Date: 20091112
  Receipt Date: 20091029
  Transmission Date: 20100525
  Serious: Yes (Hospitalization)
  Sender: FDA-Public Use
  Company Number: 8038842

PATIENT
  Age: 63 Year
  Sex: Male
  Weight: 81.82 kg

DRUGS (14)
  1. CIMZIA [Suspect]
     Indication: CROHN'S DISEASE
     Dosage: 400 MG 1/2W SC
     Route: 058
     Dates: start: 20080827
  2. XIFAXAN [Concomitant]
  3. CIPRO [Concomitant]
  4. HUMALOG [Concomitant]
  5. LANTUS [Concomitant]
  6. LOMOTIL [Concomitant]
  7. MAGNESIUM OXIDE [Concomitant]
  8. PHENOBARBITAL [Concomitant]
  9. ACTONEL [Concomitant]
  10. AMBIEN [Concomitant]
  11. VITAMIN B-12 [Concomitant]
  12. ACETAMINOPHEN AND HYDROCODONE BITARTRATE [Concomitant]
  13. PREDNISONE [Concomitant]
  14. ZOLOFT [Concomitant]

REACTIONS (3)
  - NEPHROLITHIASIS [None]
  - URINARY TRACT INFECTION FUNGAL [None]
  - URINARY TRACT INFECTION STAPHYLOCOCCAL [None]
